FAERS Safety Report 24052999 (Version 1)
Quarter: 2024Q3

REPORT INFORMATION
  Report Type: Spontaneous
  Country: CA (occurrence: CA)
  Receive Date: 20240705
  Receipt Date: 20240705
  Transmission Date: 20241017
  Serious: Yes (Disabling)
  Sender: TEVA
  Company Number: CA-TEVA-VS-3213301

PATIENT
  Age: 64 Year
  Sex: Female

DRUGS (9)
  1. AJOVY [Suspect]
     Active Substance: FREMANEZUMAB-VFRM
     Indication: Migraine
     Dosage: DOSE FORM: SOLUTION SUBCUTANEOUS,?SINGLE-DOSE PREFILLED AUTOINJECTOR
     Route: 058
  2. ADVIL [Concomitant]
     Active Substance: IBUPROFEN\IBUPROFEN SODIUM
     Indication: Product used for unknown indication
  3. LAMOTRIGINE [Concomitant]
     Active Substance: LAMOTRIGINE
     Indication: Product used for unknown indication
  4. LITHIUM [Concomitant]
     Active Substance: LITHIUM
     Indication: Product used for unknown indication
  5. LYRICA [Concomitant]
     Active Substance: PREGABALIN
     Indication: Product used for unknown indication
  6. NORTRIPTYLINE [Concomitant]
     Active Substance: NORTRIPTYLINE
     Indication: Product used for unknown indication
  7. SEROQUEL XR [Concomitant]
     Active Substance: QUETIAPINE FUMARATE
     Indication: Product used for unknown indication
  8. SYNTHROID [Concomitant]
     Active Substance: LEVOTHYROXINE SODIUM
     Indication: Product used for unknown indication
  9. TYLENOL [Concomitant]
     Active Substance: ACETAMINOPHEN
     Indication: Product used for unknown indication

REACTIONS (12)
  - Affect lability [Unknown]
  - Anxiety [Unknown]
  - Asthenia [Unknown]
  - Depression [Unknown]
  - Disturbance in attention [Unknown]
  - Fatigue [Unknown]
  - Injection related reaction [Unknown]
  - Lethargy [Unknown]
  - Mobility decreased [Unknown]
  - Pain [Unknown]
  - Social avoidant behaviour [Unknown]
  - Tachyphrenia [Unknown]
